FAERS Safety Report 5392798-3 (Version None)
Quarter: 2007Q3

REPORT INFORMATION
  Report Type: 
  Country: None (occurrence: None)
  Receive Date: 20070718
  Receipt Date: 20070706
  Transmission Date: 20080115
  Serious: Yes (Other)
  Sender: FDA-Public Use
  Company Number: 2007RL000308

PATIENT
  Age: 58 Year
  Sex: Female

DRUGS (2)
  1. PROPAFENONE HCL [Suspect]
     Indication: DRUG USE FOR UNKNOWN INDICATION
     Dosage: SEE IMAGE
     Route: 048
  2. LITHIUM CARBONATE [Suspect]
     Indication: BIPOLAR DISORDER
     Dosage: 300 MG; TID;PO
     Route: 048

REACTIONS (3)
  - BRUGADA SYNDROME [None]
  - DRUG INEFFECTIVE [None]
  - DRUG INTERACTION [None]
